FAERS Safety Report 8220736-4 (Version None)
Quarter: 2012Q1

REPORT INFORMATION
  Report Type: 
  Country: None (occurrence: None)
  Receive Date: 20120320
  Receipt Date: 20120313
  Transmission Date: 20120608
  Serious: Yes (Hospitalization, Other)
  Sender: FDA-Public Use
  Company Number: FR-B.I. PHARMACEUTICALS,INC./RIDGEFIELD-2012-FF-00159FF

PATIENT
  Sex: Female
  Weight: 46.5 kg

DRUGS (15)
  1. VALACICLOVIR [Concomitant]
  2. POTASSIUM CHLORIDE [Concomitant]
  3. ATORVASTATIN [Concomitant]
  4. NEXIUM [Concomitant]
  5. PRADAXA [Suspect]
     Indication: CEREBROVASCULAR ACCIDENT PROPHYLAXIS
  6. PRADAXA [Suspect]
     Indication: ATRIAL FIBRILLATION
     Dosage: 220 MG
     Route: 048
     Dates: start: 20120110, end: 20120120
  7. ZOLPIDEM [Concomitant]
  8. CITALOPRAM HYDROBROMIDE [Concomitant]
  9. HYDROCORTISONE [Concomitant]
  10. VALSARTAN [Concomitant]
  11. LASIX [Concomitant]
  12. LEVOTHYROXINE SODIUM [Concomitant]
  13. CORDARONE [Concomitant]
  14. THALIDOMIDE [Concomitant]
  15. AMLODIPINE BESYLATE [Concomitant]

REACTIONS (3)
  - RENAL FAILURE [None]
  - SKIN HAEMORRHAGE [None]
  - ARTERIAL RUPTURE [None]
